FAERS Safety Report 8074828-3 (Version None)
Quarter: 2012Q1

REPORT INFORMATION
  Report Type: 
  Country: None (occurrence: None)
  Receive Date: 20120126
  Receipt Date: 20120120
  Transmission Date: 20120608
  Serious: Yes (Other)
  Sender: FDA-Public Use
  Company Number: US-ASTRAZENECA-2011SE78700

PATIENT
  Age: 74 Year
  Sex: Female

DRUGS (3)
  1. PRILOSEC [Suspect]
     Route: 048
  2. PRILOSEC [Suspect]
     Route: 048
  3. NEXIUM [Suspect]
     Route: 048

REACTIONS (14)
  - HAEMOPTYSIS [None]
  - NAUSEA [None]
  - DYSPHAGIA [None]
  - ABDOMINAL PAIN UPPER [None]
  - PNEUMONIA [None]
  - VESTIBULAR DISORDER [None]
  - DYSPEPSIA [None]
  - BRONCHITIS [None]
  - SINUSITIS [None]
  - DRUG DOSE OMISSION [None]
  - BACK PAIN [None]
  - ABDOMINAL DISCOMFORT [None]
  - APHAGIA [None]
  - DRUG INEFFECTIVE [None]
